FAERS Safety Report 25676675 (Version 1)
Quarter: 2025Q3

REPORT INFORMATION
  Report Type: Spontaneous
  Country: US (occurrence: None)
  Receive Date: 20250813
  Receipt Date: 20250813
  Transmission Date: 20251020
  Serious: Yes (Other)
  Sender: FDA-CTU
  Company Number: None

PATIENT
  Age: 50 Year
  Sex: Male
  Weight: 117 kg

DRUGS (1)
  1. HERBALS [Suspect]
     Active Substance: HERBALS
     Indication: Pain
     Dates: start: 20250101, end: 20250810

REACTIONS (11)
  - Withdrawal syndrome [None]
  - Nausea [None]
  - Vomiting [None]
  - Diarrhoea [None]
  - Pain [None]
  - Restless legs syndrome [None]
  - Chills [None]
  - Insomnia [None]
  - Anxiety [None]
  - Panic attack [None]
  - Hypertension [None]

NARRATIVE: CASE EVENT DATE: 20250810
